FAERS Safety Report 12270328 (Version 1)
Quarter: 2016Q2

REPORT INFORMATION
  Report Type: Spontaneous
  Country: US (occurrence: None)
  Receive Date: 20160414
  Receipt Date: 20160414
  Transmission Date: 20160815
  Serious: No
  Sender: FDA-Public Use
  Company Number: None

PATIENT
  Age: 61 Year
  Sex: Female
  Weight: 68.04 kg

DRUGS (5)
  1. LISINOPRIL. [Concomitant]
     Active Substance: LISINOPRIL
  2. MOMETASONE FUROATE. [Suspect]
     Active Substance: MOMETASONE FUROATE
     Indication: DYSHIDROTIC ECZEMA
     Dosage: TWICE DAILY TO BEGIN WITH, THEN I ONLY APPLIED IT WITH A Q TIP TO ITCHY BUMPS - APPLIED TO SKIN
     Route: 061
     Dates: start: 20160108, end: 20160208
  3. ASPIRIN. [Concomitant]
     Active Substance: ASPIRIN
  4. ZINC OXIDE PLUS WITH ALOE [Concomitant]
  5. METHYL PREDNISOLONE [Concomitant]
     Active Substance: METHYLPREDNISOLONE

REACTIONS (3)
  - Application site pain [None]
  - Nail disorder [None]
  - Application site burn [None]

NARRATIVE: CASE EVENT DATE: 20160109
